FAERS Safety Report 12183277 (Version 1)
Quarter: 2016Q1

REPORT INFORMATION
  Report Type: Spontaneous
  Country: US (occurrence: None)
  Receive Date: 20160315
  Receipt Date: 20160315
  Transmission Date: 20160526
  Serious: Yes (Other)
  Sender: FDA-Public Use
  Company Number: None

PATIENT
  Age: 72 Year
  Sex: Male
  Weight: 72.58 kg

DRUGS (2)
  1. CIALIS [Suspect]
     Active Substance: TADALAFIL
     Indication: ERECTILE DYSFUNCTION
  2. AMINO ACIDS [Concomitant]
     Active Substance: AMINO ACIDS

REACTIONS (2)
  - Back pain [None]
  - Vision blurred [None]

NARRATIVE: CASE EVENT DATE: 20160304
